FAERS Safety Report 5240063-7 (Version None)
Quarter: 2007Q1

REPORT INFORMATION
  Report Type: 
  Country: None (occurrence: None)
  Receive Date: 20070216
  Receipt Date: 20070206
  Transmission Date: 20070707
  Serious: Yes (Hospitalization)
  Sender: FDA-Public Use
  Company Number: FR-PFIZER INC-2007009796

PATIENT
  Age: 49 Year
  Sex: Male

DRUGS (4)
  1. XANAX [Suspect]
     Route: 048
  2. IXEL [Suspect]
     Route: 048
  3. ZYPREXA [Suspect]
     Route: 048
  4. TERCIAN [Suspect]
     Route: 048

REACTIONS (1)
  - PLEURAL EFFUSION [None]
